FAERS Safety Report 10266617 (Version 1)
Quarter: 2014Q2

REPORT INFORMATION
  Report Type: Spontaneous
  Country: FR (occurrence: FR)
  Receive Date: 20140629
  Receipt Date: 20140629
  Transmission Date: 20141212
  Serious: Yes (Hospitalization)
  Sender: FDA-Public Use
  Company Number: PHHY2014FR079103

PATIENT
  Age: 59 Year
  Sex: Female

DRUGS (14)
  1. NEORAL [Suspect]
     Dosage: 200 MG, BID
     Dates: start: 201212
  2. NEORAL [Suspect]
     Dosage: 25 MG, BID
     Dates: start: 20140522
  3. CELLCEPT [Suspect]
     Dosage: 1 G, BID
     Dates: start: 2001, end: 201302
  4. CELLCEPT [Suspect]
     Dosage: 750 MG, BID
     Dates: start: 201302, end: 20140521
  5. CELLCEPT [Suspect]
     Dosage: 1 G, BID
     Dates: start: 20140522
  6. DELURSAN [Concomitant]
     Dosage: 500 MG, BID
     Dates: start: 2001
  7. STILNOX [Concomitant]
     Dosage: 10 MG, QD
  8. ATARAX [Concomitant]
     Dosage: 25 MG, QD
  9. AVLOCARDYL [Concomitant]
     Dosage: 40 MG, BID
     Dates: start: 2013
  10. KARDEGIC [Concomitant]
     Dosage: 75 MG, QD
     Dates: start: 201212
  11. INEXIUM//ESOMEPRAZOLE MAGNESIUM [Concomitant]
     Dosage: 20 MG, QD FOR SEVERAL YEARS
  12. CACIT D3 [Concomitant]
     Dosage: UNK UKN, QD
     Dates: start: 2013
  13. ACLASTA [Concomitant]
     Dosage: UNK UKN, UNK
     Dates: start: 201401
  14. CORTISONE [Concomitant]
     Dosage: UNK
     Dates: start: 201212, end: 20130221

REACTIONS (2)
  - Myositis [Unknown]
  - Myalgia [Unknown]
